FAERS Safety Report 6486408-1 (Version None)
Quarter: 2009Q4

REPORT INFORMATION
  Report Type: 
  Country: None (occurrence: None)
  Receive Date: 20091210
  Receipt Date: 20091202
  Transmission Date: 20100525
  Serious: Yes (Other)
  Sender: FDA-Public Use
  Company Number: US-BIOGENIDEC-2009BI026212

PATIENT
  Age: 59 Year
  Sex: Female

DRUGS (2)
  1. AVONEX [Suspect]
     Indication: MULTIPLE SCLEROSIS
     Route: 030
     Dates: start: 20051227, end: 20090105
  2. ARIMIDEX [Concomitant]
     Indication: PROPHYLAXIS
     Dates: start: 20060509

REACTIONS (1)
  - NO ADVERSE EVENT [None]
